FAERS Safety Report 21236948 (Version 1)
Quarter: 2022Q3

REPORT INFORMATION
  Report Type: Spontaneous
  Country: None (occurrence: US)
  Receive Date: 20220822
  Receipt Date: 20220822
  Transmission Date: 20221027
  Serious: No
  Sender: FDA-Public Use
  Company Number: US-Ajanta Pharma USA Inc.-2132094

PATIENT
  Age: 58 Year
  Sex: Female
  Weight: 65.909 kg

DRUGS (12)
  1. CHOLESTYRAMINE [Suspect]
     Active Substance: CHOLESTYRAMINE
     Indication: Irritable bowel syndrome
     Route: 048
     Dates: start: 20220710
  2. SYNTHROID [Concomitant]
     Active Substance: LEVOTHYROXINE SODIUM
  3. PLAQUENIL [Concomitant]
     Active Substance: HYDROXYCHLOROQUINE SULFATE
  4. PROZAC [Concomitant]
     Active Substance: FLUOXETINE HYDROCHLORIDE
  5. FLEXERIL [Concomitant]
     Active Substance: CYCLOBENZAPRINE HYDROCHLORIDE
  6. GABAPENTIN [Concomitant]
     Active Substance: GABAPENTIN
  7. PYRIDIUM [Concomitant]
     Active Substance: PHENAZOPYRIDINE
  8. VITAMINS [Concomitant]
     Active Substance: VITAMINS
  9. FLAXSEED [Concomitant]
     Active Substance: FLAX SEED
  10. FISH OIL COMPLEX [Concomitant]
  11. HYDROXYZINE [Concomitant]
     Active Substance: HYDROXYZINE HYDROCHLORIDE
  12. CALCIUM [Concomitant]
     Active Substance: CALCIUM

REACTIONS (7)
  - Choking sensation [Recovered/Resolved]
  - Foreign body in throat [Recovered/Resolved]
  - Cough [Recovered/Resolved]
  - Product taste abnormal [Recovered/Resolved]
  - Product solubility abnormal [Recovered/Resolved]
  - Product physical consistency issue [Recovered/Resolved]
  - Product substitution issue [Recovered/Resolved]

NARRATIVE: CASE EVENT DATE: 20220701
